FAERS Safety Report 16121598 (Version 1)
Quarter: 2019Q1

REPORT INFORMATION
  Report Type: Spontaneous
  Country: FR (occurrence: FR)
  Receive Date: 20190327
  Receipt Date: 20190327
  Transmission Date: 20190418
  Serious: Yes (Other)
  Sender: FDA-Public Use
  Company Number: FR-TEVA-2019-FR-1030063

PATIENT
  Age: 35 Year
  Sex: Male

DRUGS (2)
  1. PRIMAQUIN (PRIMAQUINE PHOSPHATE) [Interacting]
     Active Substance: PRIMAQUINE PHOSPHATE
     Indication: MALARIA
     Dosage: 30 MILLIGRAM DAILY;
     Route: 048
     Dates: start: 20190110, end: 20190123
  2. PAROXETINE. [Suspect]
     Active Substance: PAROXETINE
     Indication: DEPRESSION
     Dosage: 20 MILLIGRAM DAILY;
     Route: 048
     Dates: start: 2018

REACTIONS (3)
  - Drug ineffective [Not Recovered/Not Resolved]
  - Plasmodium vivax infection [Recovering/Resolving]
  - Drug interaction [Not Recovered/Not Resolved]

NARRATIVE: CASE EVENT DATE: 201902
